FAERS Safety Report 6646710-7 (Version None)
Quarter: 2010Q1

REPORT INFORMATION
  Report Type: 
  Country: None (occurrence: None)
  Receive Date: 20100317
  Receipt Date: 20100305
  Transmission Date: 20100710
  Serious: Yes (Other)
  Sender: FDA-Public Use
  Company Number: US-1180913

PATIENT
  Sex: Male
  Weight: 58.9676 kg

DRUGS (5)
  1. PATANASE [Suspect]
     Indication: RHINITIS
     Dosage: 0.6 % BID, 2 SPRAYS IN EACH NOSTRIL BID NASAL
     Route: 045
     Dates: start: 20100204, end: 20100218
  2. WARFARIN SODIUM [Concomitant]
  3. AMIODARONE HCL [Concomitant]
  4. SYNTHROID [Concomitant]
  5. MAGNESIUM [Concomitant]

REACTIONS (2)
  - DRUG INEFFECTIVE [None]
  - PROTHROMBIN TIME PROLONGED [None]
